FAERS Safety Report 5451448-8 (Version None)
Quarter: 2007Q3

REPORT INFORMATION
  Report Type: 
  Country: None (occurrence: None)
  Receive Date: 20070911
  Receipt Date: 20070911
  Transmission Date: 20080115
  Serious: Yes (Life-Threatening, Other)
  Sender: FDA-Public Use
  Company Number: None

PATIENT
  Sex: Female
  Weight: 55.7924 kg

DRUGS (3)
  1. MINOCYCLINE 100 MG DYNACIN [Suspect]
     Indication: ACNE
     Dosage: STARTED 100 MG/DAY
     Dates: start: 20020101, end: 20041201
  2. MINOCYCLINE 100 MG GENERIC [Suspect]
     Dosage: ENDED 200 MG/DAY
  3. MINOCYCLINE HCL [Concomitant]

REACTIONS (1)
  - LUPUS-LIKE SYNDROME [None]
